FAERS Safety Report 6293500-3 (Version None)
Quarter: 2009Q3

REPORT INFORMATION
  Report Type: 
  Country: None (occurrence: None)
  Receive Date: 20090803
  Receipt Date: 20090724
  Transmission Date: 20100115
  Serious: Yes (Other)
  Sender: FDA-Public Use
  Company Number: US-BIOGENIDEC-2009BI023503

PATIENT
  Age: 1 Day
  Sex: Male

DRUGS (5)
  1. AVONEX [Suspect]
     Indication: DRUG EXPOSURE DURING PREGNANCY
     Route: 064
     Dates: end: 20081001
  2. VITAMINS (NOS) [Concomitant]
     Route: 042
  3. PHOSPHATE [Concomitant]
     Route: 042
  4. POTASSIUM CHLORIDE [Concomitant]
     Route: 042
  5. REGLAN [Concomitant]
     Route: 042

REACTIONS (1)
  - PREMATURE BABY [None]
